FAERS Safety Report 4733544-3 (Version None)
Quarter: 2005Q3

REPORT INFORMATION
  Report Type: 
  Country: None (occurrence: None)
  Receive Date: 20050803
  Receipt Date: 20050803
  Transmission Date: 20060218
  Serious: Yes (Disabling, Other)
  Sender: FDA-Public Use
  Company Number: None

PATIENT
  Age: 77 Year
  Sex: Female
  Weight: 58.9676 kg

DRUGS (1)
  1. HEPARIN [Suspect]
     Dosage: 5,000 CC/ ONCE / SUBCUTANEOUSLY
     Route: 058
     Dates: start: 20050227

REACTIONS (4)
  - DEHYDRATION [None]
  - HYPERCHOLESTEROLAEMIA [None]
  - PAIN [None]
  - VOMITING [None]
